FAERS Safety Report 12339866 (Version 2)
Quarter: 2016Q3

REPORT INFORMATION
  Report Type: Spontaneous
  Country: US (occurrence: US)
  Receive Date: 20160506
  Receipt Date: 20160705
  Transmission Date: 20161109
  Serious: No
  Sender: FDA-Public Use
  Company Number: US-009507513-1604USA017695

PATIENT
  Age: 62 Year
  Sex: Female
  Weight: 56.24 kg

DRUGS (1)
  1. ZETIA [Suspect]
     Active Substance: EZETIMIBE
     Dosage: 10 MG, QD
     Route: 048
     Dates: start: 201602, end: 20160309

REACTIONS (1)
  - Nodule [Recovering/Resolving]

NARRATIVE: CASE EVENT DATE: 20160220
